FAERS Safety Report 4561265-9 (Version None)
Quarter: 2005Q1

REPORT INFORMATION
  Report Type: 
  Country: None (occurrence: None)
  Receive Date: 20050121
  Receipt Date: 20050111
  Transmission Date: 20050727
  Serious: Yes (Other)
  Sender: FDA-Public Use
  Company Number: 230003M05USA

PATIENT
  Age: 60 Year
  Sex: Female

DRUGS (7)
  1. REBIF [Suspect]
     Indication: MULTIPLE SCLEROSIS
     Dosage: 44 MCG, 3 IN 1 WEEKS,  SUBCUTANEOUS
     Route: 058
     Dates: start: 20030401
  2. DITROPAN [Concomitant]
  3. PROZAC [Concomitant]
  4. BACLOFEN [Concomitant]
  5. PIMOZIDE (PIMOZIDE) [Concomitant]
  6. PENTOXIFYLLINE [Concomitant]
  7. CYLERT [Concomitant]

REACTIONS (10)
  - COORDINATION ABNORMAL [None]
  - CUTIS LAXA [None]
  - DYSAESTHESIA [None]
  - INTERMEDIATE UVEITIS [None]
  - NEOVASCULARISATION [None]
  - RETINAL DETACHMENT [None]
  - RETINOPATHY PROLIFERATIVE [None]
  - RETINOSCHISIS [None]
  - URINARY TRACT INFECTION [None]
  - VISUAL DISTURBANCE [None]
